FAERS Safety Report 12232820 (Version 1)
Quarter: 2016Q2

REPORT INFORMATION
  Report Type: Spontaneous
  Country: AU (occurrence: AU)
  Receive Date: 20160402
  Receipt Date: 20160402
  Transmission Date: 20160815
  Serious: Yes (Life-Threatening)
  Sender: FDA-Public Use
  Company Number: AU-ACCORD-039233

PATIENT
  Age: 39 Year
  Sex: Female

DRUGS (2)
  1. FLUOROURACIL. [Suspect]
     Active Substance: FLUOROURACIL
     Indication: PRODUCT USED FOR UNKNOWN INDICATION
     Dosage: INTRAPERITONEAL 5-FU 650 MG/M2 ON DAY 2-6 POST SURGERY
     Route: 033
  2. MITOMYCIN. [Suspect]
     Active Substance: MITOMYCIN
     Indication: PRODUCT USED FOR UNKNOWN INDICATION
     Dosage: MITOMYCIN C 12.5 MG/M2 AT 41.5 UC.
     Route: 033

REACTIONS (4)
  - Rectal haemorrhage [Recovered/Resolved]
  - Neutropenic sepsis [Recovered/Resolved]
  - Bone marrow failure [Recovered/Resolved]
  - Gastrointestinal toxicity [Recovered/Resolved]
